FAERS Safety Report 8510850-8 (Version None)
Quarter: 2012Q3

REPORT INFORMATION
  Report Type: 
  Country: None (occurrence: None)
  Receive Date: 20120716
  Receipt Date: 20120705
  Transmission Date: 20120928
  Serious: Yes (Hospitalization)
  Sender: FDA-Public Use
  Company Number: US-ELI_LILLY_AND_COMPANY-US201207002298

PATIENT
  Sex: Female

DRUGS (4)
  1. HUMULIN N [Suspect]
     Dosage: UNK, EACH EVENING
  2. METHOTREXATE [Concomitant]
     Indication: RHEUMATOID ARTHRITIS
  3. HUMULIN N [Suspect]
     Indication: DIABETES MELLITUS
     Dosage: 17 U, EACH MORNING
  4. HUMULIN R [Suspect]
     Indication: DIABETES MELLITUS
     Dosage: UNK, PRN

REACTIONS (3)
  - HIP FRACTURE [None]
  - FALL [None]
  - BLOOD GLUCOSE INCREASED [None]
